FAERS Safety Report 7537867-4 (Version None)
Quarter: 2011Q2

REPORT INFORMATION
  Report Type: 
  Country: None (occurrence: None)
  Receive Date: 20110609
  Receipt Date: 20110531
  Transmission Date: 20111010
  Serious: Yes (Other)
  Sender: FDA-Public Use
  Company Number: US-ASTRAZENECA-2011SE33875

PATIENT
  Age: 73 Year
  Sex: Female

DRUGS (2)
  1. SYMBICORT [Suspect]
     Route: 055
  2. ATACAND [Suspect]
     Route: 048

REACTIONS (4)
  - HYPERTENSION [None]
  - PAIN [None]
  - SPINAL FRACTURE [None]
  - ASTHMA [None]
